FAERS Safety Report 4715782-9 (Version None)
Quarter: 2005Q3

REPORT INFORMATION
  Report Type: 
  Country: None (occurrence: None)
  Receive Date: 20050718
  Receipt Date: 20050615
  Transmission Date: 20060218
  Serious: Yes (Other)
  Sender: FDA-Public Use
  Company Number: GBWYE747615JUN05

PATIENT
  Sex: Male

DRUGS (5)
  1. ENBREL [Suspect]
     Indication: PSORIATIC ARTHROPATHY
     Route: 058
     Dates: start: 20050410, end: 20050520
  2. ACITRETIN [Suspect]
  3. DIFLUSAN [Concomitant]
  4. BENDROFLUAZIDE [Concomitant]
  5. RANITIDINE [Concomitant]

REACTIONS (1)
  - EPILEPSY [None]
